FAERS Safety Report 8879003 (Version 1)
Quarter: 2012Q4

REPORT INFORMATION
  Report Type: Report from Study
  Country: FR (occurrence: FR)
  Receive Date: 20121026
  Receipt Date: 20121026
  Transmission Date: 20130627
  Serious: Yes (Hospitalization)
  Sender: FDA-Public Use
  Company Number: PHHY2012FR087628

PATIENT
  Age: 69 Year
  Sex: Female
  Weight: 73 kg

DRUGS (4)
  1. CERTICAN [Suspect]
     Indication: PROPHYLAXIS AGAINST TRANSPLANT REJECTION
     Dosage: 2 mg, UNK
     Route: 048
  2. CELLCEPT [Concomitant]
     Indication: PROPHYLAXIS AGAINST TRANSPLANT REJECTION
     Dosage: 1 g, BID
     Route: 048
     Dates: start: 20110217
  3. KARDEGIC [Concomitant]
     Indication: THROMBOSIS PROPHYLAXIS
     Dosage: 75 mg, QD
     Route: 048
     Dates: start: 20110218
  4. SOLUPRED [Concomitant]
     Indication: PROPHYLAXIS AGAINST TRANSPLANT REJECTION
     Dosage: 5 mg, QD
     Route: 048
     Dates: start: 20110222

REACTIONS (3)
  - Secondary amyloidosis [Unknown]
  - Diarrhoea [Recovering/Resolving]
  - Escherichia urinary tract infection [Recovering/Resolving]
